FAERS Safety Report 9485953 (Version 1)
Quarter: 2013Q3

REPORT INFORMATION
  Report Type: Spontaneous
  Country: GR (occurrence: GR)
  Receive Date: 20130829
  Receipt Date: 20130829
  Transmission Date: 20140515
  Serious: Yes (Death)
  Sender: FDA-Public Use
  Company Number: GR-SANOFI-AVENTIS-2013SA085609

PATIENT
  Age: 61 Year
  Sex: Female
  Weight: 68.5 kg

DRUGS (19)
  1. APIDRA [Suspect]
     Indication: DIABETES MELLITUS
     Dosage: DEPENDING ON GLUCOSE VALUE DOSE:100 INTERNATIONAL UNIT(S)/MILLILITRE
     Route: 058
     Dates: start: 20130714
  2. LANTUS [Suspect]
     Indication: DIABETES MELLITUS
     Dosage: DEPENDING ON GLUCOSE VALUE DOSE:100 INTERNATIONAL UNIT(S)/MILLILITRE
     Route: 051
     Dates: start: 20130714
  3. TEMSIROLIMUS [Suspect]
     Indication: PANCREATIC CARCINOMA METASTATIC
     Route: 065
     Dates: start: 20130711
  4. GEMZAR [Suspect]
     Indication: PANCREATIC CARCINOMA METASTATIC
     Dosage: CYCLIC (EVERY TWO WEEKS)
     Route: 065
     Dates: start: 20130711
  5. SOLU-CORTEF [Concomitant]
     Dates: start: 20130711, end: 20130711
  6. NORVASC [Concomitant]
     Dates: end: 20130714
  7. ZOFRON [Concomitant]
     Dates: start: 20130711, end: 20130711
  8. ZANTAC [Concomitant]
     Dates: start: 20130711, end: 20130711
  9. ZANTAC [Concomitant]
     Dates: end: 20130714
  10. FENISTIL [Concomitant]
     Dates: start: 20130711, end: 20130711
  11. SALOSPIR [Concomitant]
     Dates: end: 20130714
  12. CARVEDILEN [Concomitant]
     Dates: end: 20130714
  13. COAPROVEL [Concomitant]
     Dates: end: 20130714
  14. XOZAL [Concomitant]
     Dates: end: 20130714
  15. ALENDRONIC ACID [Concomitant]
     Dates: end: 20130714
  16. DEPON [Concomitant]
     Dates: end: 20130714
  17. ALFACALCIDOL [Concomitant]
     Dates: end: 20130714
  18. CREON [Concomitant]
     Dates: end: 20130714
  19. CLEXANE [Concomitant]
     Dates: start: 20130711, end: 20130714

REACTIONS (1)
  - Death [Fatal]
